FAERS Safety Report 12100976 (Version 1)
Quarter: 2016Q1

REPORT INFORMATION
  Report Type: Spontaneous
  Country: US (occurrence: US)
  Receive Date: 20160222
  Receipt Date: 20160222
  Transmission Date: 20160526
  Serious: Yes (Hospitalization)
  Sender: FDA-Public Use
  Company Number: US-IPCA LABORATORIES LIMITED-IPC201602-000232

PATIENT
  Age: 63 Year
  Sex: Female

DRUGS (4)
  1. WARFARIN [Suspect]
     Active Substance: WARFARIN
     Indication: ATRIAL FIBRILLATION
  2. SEVELAMER [Concomitant]
     Active Substance: SEVELAMER
  3. ALENDRONATE [Concomitant]
     Active Substance: ALENDRONATE SODIUM
  4. SPIRONOLACTONE. [Concomitant]
     Active Substance: SPIRONOLACTONE

REACTIONS (4)
  - International normalised ratio increased [Unknown]
  - Acute kidney injury [Unknown]
  - Calciphylaxis [Recovering/Resolving]
  - Hyperkalaemia [Recovered/Resolved]
